FAERS Safety Report 16067443 (Version 2)
Quarter: 2019Q2

REPORT INFORMATION
  Report Type: Report from Study
  Country: CO (occurrence: CO)
  Receive Date: 20190313
  Receipt Date: 20190607
  Transmission Date: 20190711
  Serious: Yes (Death, Hospitalization)
  Sender: FDA-Public Use
  Company Number: CO-ASTELLAS-2018US036656

PATIENT
  Age: 61 Year
  Sex: Male
  Weight: 61 kg

DRUGS (2)
  1. TACROLIMUS. [Suspect]
     Active Substance: TACROLIMUS
     Indication: RENAL TRANSPLANT
     Route: 048
     Dates: start: 20150113
  2. TACROLIMUS. [Suspect]
     Active Substance: TACROLIMUS
     Route: 048
     Dates: start: 20150113

REACTIONS (6)
  - General physical health deterioration [Unknown]
  - Immunosuppressant drug level increased [Unknown]
  - Hydrocephalus [Not Recovered/Not Resolved]
  - Foot fracture [Unknown]
  - Cerebrovascular accident [Fatal]
  - Arthritis fungal [Recovering/Resolving]

NARRATIVE: CASE EVENT DATE: 201806
